FAERS Safety Report 5795958-2 (Version None)
Quarter: 2008Q3

REPORT INFORMATION
  Report Type: 
  Country: None (occurrence: None)
  Receive Date: 20080701
  Receipt Date: 20080619
  Transmission Date: 20090109
  Serious: Yes (Other)
  Sender: FDA-Public Use
  Company Number: DE-JNJFOC-20080604818

PATIENT
  Age: 25 Year
  Sex: Male

DRUGS (5)
  1. HALDOL DECANOAT [Suspect]
     Indication: SLUGGISHNESS
     Route: 042
  2. HALDOL DECANOAT [Suspect]
     Indication: DELIRIUM
     Route: 042
  3. HALDOL DECANOAT [Suspect]
     Indication: TACHYCARDIA
     Route: 042
  4. ALCOHOL [Concomitant]
     Route: 048
  5. COCAINE [Concomitant]
     Route: 048

REACTIONS (2)
  - INCORRECT ROUTE OF DRUG ADMINISTRATION [None]
  - WRONG DRUG ADMINISTERED [None]
